FAERS Safety Report 5393509-8 (Version None)
Quarter: 2007Q3

REPORT INFORMATION
  Report Type: 
  Country: None (occurrence: None)
  Receive Date: 20070723
  Receipt Date: 20060918
  Transmission Date: 20080115
  Serious: Yes (Other)
  Sender: FDA-Public Use
  Company Number: A0612829A

PATIENT
  Age: 58 Year
  Sex: Male

DRUGS (8)
  1. AVANDIA [Suspect]
     Dosage: 4MG PER DAY
     Route: 048
     Dates: start: 20060201, end: 20060719
  2. METFORMIN HCL [Concomitant]
  3. HUMULIN 70/30 [Concomitant]
     Dosage: 60UNIT TWICE PER DAY
  4. WELLBUTRIN [Concomitant]
  5. QUINAPRIL [Concomitant]
  6. TRIAMTERENE [Concomitant]
  7. NEURONTIN [Concomitant]
  8. ANTIBIOTIC [Concomitant]

REACTIONS (2)
  - MACULAR OEDEMA [None]
  - VISUAL ACUITY REDUCED [None]
